FAERS Safety Report 12445546 (Version 2)
Quarter: 2017Q1

REPORT INFORMATION
  Report Type: Spontaneous
  Country: US (occurrence: US)
  Receive Date: 20160608
  Receipt Date: 20170309
  Transmission Date: 20170428
  Serious: No
  Sender: FDA-Public Use
  Company Number: US-JNJFOC-20160505456

PATIENT
  Age: 47 Year
  Sex: Male

DRUGS (3)
  1. INVEGA [Suspect]
     Active Substance: PALIPERIDONE
     Indication: PRODUCT USED FOR UNKNOWN INDICATION
     Route: 048
  2. THIORIDAZINE HYDROCHLORIDE. [Suspect]
     Active Substance: THIORIDAZINE HYDROCHLORIDE
     Indication: PRODUCT USED FOR UNKNOWN INDICATION
     Route: 065
  3. RISPERDAL [Suspect]
     Active Substance: RISPERIDONE
     Indication: BIPOLAR I DISORDER
     Route: 048

REACTIONS (6)
  - Balance disorder [Unknown]
  - Tremor [Unknown]
  - Gynaecomastia [Unknown]
  - Insomnia [Unknown]
  - Muscle contractions involuntary [Unknown]
  - Drug ineffective [Unknown]

NARRATIVE: CASE EVENT DATE: 1997
